FAERS Safety Report 9234633 (Version 1)
Quarter: 2013Q2

REPORT INFORMATION
  Report Type: Spontaneous
  Country: BR (occurrence: BR)
  Receive Date: 20130416
  Receipt Date: 20130416
  Transmission Date: 20140414
  Serious: Yes (Hospitalization)
  Sender: FDA-Public Use
  Company Number: BR-BRISTOL-MYERS SQUIBB COMPANY-18771691

PATIENT
  Age: 59 Year
  Sex: Male

DRUGS (2)
  1. KOMBIGLYZE XR [Suspect]
     Indication: DIABETES MELLITUS
     Dosage: 1DF:5MG/1000MG
  2. INSULIN [Suspect]
     Indication: DIABETES MELLITUS

REACTIONS (1)
  - Pneumonia [Not Recovered/Not Resolved]
